FAERS Safety Report 16461985 (Version 1)
Quarter: 2019Q2

REPORT INFORMATION
  Report Type: Spontaneous
  Country: NL (occurrence: NL)
  Receive Date: 20190621
  Receipt Date: 20190621
  Transmission Date: 20190711
  Serious: Yes (Other)
  Sender: FDA-Public Use
  Company Number: NL-TEVA-2019-NL-1066775

PATIENT
  Age: 56 Year
  Sex: Female
  Weight: 70 kg

DRUGS (5)
  1. PANTOPROZOL [Concomitant]
  2. HYDROCHLOORTIAZIDE [Concomitant]
     Active Substance: HYDROCHLOROTHIAZIDE
  3. NORTRIPTYLINE TABLET, 25 MG (MILLIGRAM) [Suspect]
     Active Substance: NORTRIPTYLINE
     Indication: MOOD ALTERED
     Dosage: 50 MILLIGRAM DAILY; 1 X PER DAY 2
     Dates: start: 20180516
  4. METOPROLOL. [Concomitant]
     Active Substance: METOPROLOL
  5. IRBESARTAN. [Concomitant]
     Active Substance: IRBESARTAN

REACTIONS (5)
  - Visual impairment [Recovered/Resolved]
  - Depressed level of consciousness [Recovered/Resolved]
  - Therapeutic response unexpected [Recovered/Resolved]
  - Dizziness [Recovered/Resolved]
  - Mood swings [Recovered/Resolved]

NARRATIVE: CASE EVENT DATE: 20180516
